FAERS Safety Report 8195524-8 (Version None)
Quarter: 2012Q1

REPORT INFORMATION
  Report Type: 
  Country: None (occurrence: None)
  Receive Date: 20120308
  Receipt Date: 20120305
  Transmission Date: 20120608
  Serious: Yes (Other)
  Sender: FDA-Public Use
  Company Number: CN-PFIZER INC-2012057640

PATIENT
  Age: 83 Year
  Sex: Male

DRUGS (1)
  1. VFEND [Suspect]
     Indication: ASPERGILLOSIS
     Dosage: UNK
     Route: 048
     Dates: start: 20100101, end: 20100101

REACTIONS (2)
  - VISUAL ACUITY REDUCED [None]
  - GLAUCOMA [None]
